FAERS Safety Report 22166202 (Version 1)
Quarter: 2023Q1

REPORT INFORMATION
  Report Type: Spontaneous
  Country: US (occurrence: None)
  Receive Date: 20230331
  Receipt Date: 20230331
  Transmission Date: 20230418
  Serious: No
  Sender: FDA-Public Use
  Company Number: None

PATIENT
  Age: 77 Year
  Sex: Male
  Weight: 99.79 kg

DRUGS (20)
  1. ERLEADA [Suspect]
     Active Substance: APALUTAMIDE
     Indication: Prostate cancer
     Dosage: FREQUENCY : DAILY;?
     Route: 048
  2. ASPIRIN [Concomitant]
     Active Substance: ASPIRIN
  3. ATORVASTATIN [Concomitant]
  4. BROLOMTA [Concomitant]
  5. CARBIDOPA-LEVOPA [Concomitant]
  6. CILOSTAZOL [Concomitant]
     Active Substance: CILOSTAZOL
  7. DULOXETINE [Concomitant]
  8. FISH OIL [Concomitant]
     Active Substance: FISH OIL
  9. FOLICE ACID [Concomitant]
  10. GABAPETIN [Concomitant]
  11. GOCOVRI [Concomitant]
     Active Substance: AMANTADINE
  12. HYDROCHLOROTHIAZIDE [Concomitant]
     Active Substance: HYDROCHLOROTHIAZIDE
  13. LUPRON [Concomitant]
  14. LYRICA [Concomitant]
     Active Substance: PREGABALIN
  15. MINOXIDEL [Concomitant]
  16. NIFEDIPINE [Concomitant]
     Active Substance: NIFEDIPINE
  17. OMEPRAZOLE [Concomitant]
     Active Substance: OMEPRAZOLE
  18. PROPRANOLOL HYDROCHLORIDE [Concomitant]
     Active Substance: PROPRANOLOL HYDROCHLORIDE
  19. ROPINROLE [Concomitant]
  20. RUBRACA [Concomitant]
     Active Substance: RUCAPARIB CAMSYLATE

REACTIONS (2)
  - Prostate cancer [None]
  - Malignant neoplasm progression [None]
